FAERS Safety Report 10176966 (Version 2)
Quarter: 2014Q2

REPORT INFORMATION
  Report Type: Report from Study
  Country: CA (occurrence: CA)
  Receive Date: 20140516
  Receipt Date: 20140516
  Transmission Date: 20141212
  Serious: Yes (Death, Life-Threatening, Other)
  Sender: FDA-Public Use
  Company Number: CA-ASTRAZENECA-2014SE16586

PATIENT
  Age: 82 Year
  Sex: Male

DRUGS (1)
  1. ZOLADEX LA [Suspect]
     Indication: PROSTATE CANCER
     Route: 058
     Dates: start: 20081029, end: 20140306

REACTIONS (5)
  - Death [Fatal]
  - Myocardial infarction [Not Recovered/Not Resolved]
  - Coronary artery reocclusion [Not Recovered/Not Resolved]
  - Heart injury [Not Recovered/Not Resolved]
  - Cerebrovascular accident [Unknown]
